FAERS Safety Report 17275997 (Version 1)
Quarter: 2020Q1

REPORT INFORMATION
  Report Type: Spontaneous
  Country: ES (occurrence: ES)
  Receive Date: 20200116
  Receipt Date: 20200116
  Transmission Date: 20200409
  Serious: Yes (Death, Hospitalization)
  Sender: FDA-Public Use
  Company Number: ES-ACCORD-169787

PATIENT
  Age: 80 Year
  Sex: Female
  Weight: 80 kg

DRUGS (1)
  1. METHOTREXATE. [Suspect]
     Active Substance: METHOTREXATE
     Indication: POLYMYALGIA RHEUMATICA
     Route: 048
     Dates: start: 20190601, end: 20191201

REACTIONS (6)
  - Dysphagia [Fatal]
  - Aphthous ulcer [Fatal]
  - Off label use [Unknown]
  - Pancytopenia [Fatal]
  - Pneumonia [Fatal]
  - Septic shock [Fatal]

NARRATIVE: CASE EVENT DATE: 201911
